FAERS Safety Report 14698258 (Version 1)
Quarter: 2018Q1

REPORT INFORMATION
  Report Type: Report from Study
  Country: BR (occurrence: BR)
  Receive Date: 20180330
  Receipt Date: 20180330
  Transmission Date: 20180509
  Serious: Yes (Hospitalization, Other)
  Sender: FDA-Public Use
  Company Number: BR-ASTRAZENECA-2018SE13580

PATIENT
  Age: 18996 Day
  Sex: Male

DRUGS (29)
  1. FUROSEMIDE. [Suspect]
     Active Substance: FUROSEMIDE
     Indication: CARDIAC FAILURE
     Route: 048
     Dates: start: 20170831, end: 20171214
  2. FUROSEMIDE. [Suspect]
     Active Substance: FUROSEMIDE
     Indication: CHRONIC KIDNEY DISEASE
     Route: 048
     Dates: start: 20180116, end: 20180125
  3. INSULIN [Concomitant]
     Active Substance: INSULIN NOS
     Indication: TYPE 2 DIABETES MELLITUS
     Dosage: 40 IU OTHER 26 IU MORNING, 16 IU AFTERNOON AND 4 IU NIGHT
     Route: 058
     Dates: start: 20170926
  4. CARVEDILOL. [Concomitant]
     Active Substance: CARVEDILOL
     Indication: CARDIAC FAILURE
     Route: 048
  5. OMEPRAZOL [Concomitant]
     Active Substance: OMEPRAZOLE
     Indication: GASTRITIS PROPHYLAXIS
     Route: 048
     Dates: start: 20170127
  6. MONONITRATO DE ISOSSORBIDA [Concomitant]
     Indication: CARDIAC FAILURE
     Route: 048
     Dates: start: 20170322, end: 20171214
  7. FUROSEMIDE. [Suspect]
     Active Substance: FUROSEMIDE
     Indication: CHRONIC KIDNEY DISEASE
     Route: 048
     Dates: start: 20171215, end: 20180115
  8. SPIRONOLACTONE. [Suspect]
     Active Substance: SPIRONOLACTONE
     Indication: CHRONIC KIDNEY DISEASE
     Route: 048
     Dates: start: 20171215, end: 20180125
  9. ISOSORBIDE MONONITRATE. [Concomitant]
     Active Substance: ISOSORBIDE MONONITRATE
     Indication: CARDIAC FAILURE
     Route: 048
     Dates: start: 20180115
  10. SPIRONOLACTONE. [Suspect]
     Active Substance: SPIRONOLACTONE
     Indication: CHRONIC KIDNEY DISEASE
     Route: 048
     Dates: end: 20171129
  11. AAS [Concomitant]
     Active Substance: ASPIRIN
     Indication: CORONARY ARTERY DISEASE
     Route: 048
     Dates: start: 201607
  12. SILDENAFIL. [Concomitant]
     Active Substance: SILDENAFIL
     Indication: PULMONARY ARTERIAL HYPERTENSION
     Route: 048
     Dates: start: 20171215, end: 20180111
  13. FUROSEMIDE. [Suspect]
     Active Substance: FUROSEMIDE
     Indication: CARDIAC FAILURE
     Route: 048
     Dates: start: 20180130
  14. ENALAPRIL [Suspect]
     Active Substance: ENALAPRIL
     Indication: CHRONIC KIDNEY DISEASE
     Route: 048
     Dates: start: 201703, end: 20180115
  15. SPIRONOLACTONE. [Suspect]
     Active Substance: SPIRONOLACTONE
     Indication: CARDIAC FAILURE
     Route: 048
     Dates: start: 20171130, end: 20171214
  16. ATORVASTATIN [Concomitant]
     Active Substance: ATORVASTATIN
     Indication: CORONARY ARTERY DISEASE
     Route: 048
     Dates: start: 201610
  17. SILDENAFIL. [Concomitant]
     Active Substance: SILDENAFIL
     Indication: PULMONARY ARTERIAL HYPERTENSION
     Route: 048
     Dates: start: 20170831, end: 20171214
  18. FUROSEMIDE. [Suspect]
     Active Substance: FUROSEMIDE
     Indication: CHRONIC KIDNEY DISEASE
     Route: 048
     Dates: start: 20170831, end: 20171214
  19. FUROSEMIDE. [Suspect]
     Active Substance: FUROSEMIDE
     Indication: CARDIAC FAILURE
     Route: 048
     Dates: start: 20180116, end: 20180125
  20. SPIRONOLACTONE. [Suspect]
     Active Substance: SPIRONOLACTONE
     Indication: CHRONIC KIDNEY DISEASE
     Route: 048
     Dates: start: 20171130, end: 20171214
  21. ENALAPRIL [Suspect]
     Active Substance: ENALAPRIL
     Indication: HYPERTENSION
     Route: 048
     Dates: start: 201703, end: 20180115
  22. COMPLEXO B [Concomitant]
     Indication: CORONARY ARTERY DISEASE
     Route: 048
     Dates: start: 201610
  23. DAPAGLIFLOZIN. [Suspect]
     Active Substance: DAPAGLIFLOZIN
     Indication: CHRONIC KIDNEY DISEASE
     Route: 048
     Dates: start: 20171116, end: 20171229
  24. SPIRONOLACTONE. [Suspect]
     Active Substance: SPIRONOLACTONE
     Indication: CARDIAC FAILURE
     Route: 048
     Dates: start: 20171215, end: 20180125
  25. FUROSEMIDE. [Suspect]
     Active Substance: FUROSEMIDE
     Indication: CARDIAC FAILURE
     Route: 048
     Dates: start: 20171215, end: 20180115
  26. FUROSEMIDE. [Suspect]
     Active Substance: FUROSEMIDE
     Indication: CHRONIC KIDNEY DISEASE
     Route: 048
     Dates: start: 20180130
  27. SPIRONOLACTONE. [Suspect]
     Active Substance: SPIRONOLACTONE
     Indication: CARDIAC FAILURE
     Route: 048
     Dates: end: 20171129
  28. ENALAPRIL [Suspect]
     Active Substance: ENALAPRIL
     Indication: CARDIAC FAILURE
     Route: 048
     Dates: start: 201703, end: 20180115
  29. LEVOTIROXINA [Concomitant]
     Indication: HYPOTHYROIDISM
     Route: 048

REACTIONS (2)
  - Hypotension [Recovered/Resolved]
  - Nephropathy [Recovered/Resolved]

NARRATIVE: CASE EVENT DATE: 20171116
